FAERS Safety Report 25223065 (Version 1)
Quarter: 2025Q2

REPORT INFORMATION
  Report Type: Spontaneous
  Country: US (occurrence: US)
  Receive Date: 20250422
  Receipt Date: 20250422
  Transmission Date: 20250717
  Serious: No
  Sender: ELI LILLY AND COMPANY
  Company Number: US-ELI_LILLY_AND_COMPANY-US202504017678

PATIENT
  Age: 52 Year
  Sex: Female

DRUGS (1)
  1. TRULICITY [Suspect]
     Active Substance: DULAGLUTIDE
     Indication: Weight decreased
     Route: 058
     Dates: start: 20250416

REACTIONS (5)
  - Off label use [Unknown]
  - Vision blurred [Unknown]
  - Illness [Unknown]
  - Decreased appetite [Unknown]
  - Vomiting [Unknown]
